FAERS Safety Report 22919357 (Version 3)
Quarter: 2023Q4

REPORT INFORMATION
  Report Type: Report from Study
  Country: US (occurrence: US)
  Receive Date: 20230908
  Receipt Date: 20231212
  Transmission Date: 20240109
  Serious: Yes (Other)
  Sender: FDA-Public Use
  Company Number: US-ACADIA PHARMACEUTICALS INC.-ACA-2023-TRF-003163

PATIENT
  Sex: Female

DRUGS (20)
  1. DAYBUE [Suspect]
     Active Substance: TROFINETIDE
     Indication: Rett syndrome
     Dosage: 50 MILLILITER, BID VIA G-TUBE
     Dates: start: 20230803, end: 20230812
  2. EPIDIOLEX [Concomitant]
     Active Substance: CANNABIDIOL
     Dosage: UNK
  3. KEPPRA [Concomitant]
     Active Substance: LEVETIRACETAM
  4. DILANTIN [Concomitant]
     Active Substance: PHENYTOIN
  5. LEVOCARNITINE [Concomitant]
     Active Substance: LEVOCARNITINE
  6. MONTELUKAST SODIUM [Concomitant]
     Active Substance: MONTELUKAST SODIUM
  7. BACLOFEN [Concomitant]
     Active Substance: BACLOFEN
  8. VITAMIN B6 [Concomitant]
     Active Substance: PYRIDOXINE HYDROCHLORIDE
  9. VITAMIN D3 [Concomitant]
     Active Substance: CHOLECALCIFEROL
  10. CETIRIZINE [Concomitant]
     Active Substance: CETIRIZINE HYDROCHLORIDE
  11. LEVOTHYROXINE SODIUM [Concomitant]
     Active Substance: LEVOTHYROXINE SODIUM
  12. CLONIDINE [Concomitant]
     Active Substance: CLONIDINE
  13. ALBUTEROL SULFATE [Concomitant]
     Active Substance: ALBUTEROL SULFATE
  14. FLOVENT HFA [Concomitant]
     Active Substance: FLUTICASONE PROPIONATE
  15. DIASTAT [Concomitant]
     Active Substance: DIAZEPAM
  16. CLONAZEPAM [Concomitant]
     Active Substance: CLONAZEPAM
  17. CARBAMAZEPINE [Concomitant]
     Active Substance: CARBAMAZEPINE
  18. CARNITOR [Concomitant]
     Active Substance: LEVOCARNITINE
  19. FAMOTIDINE [Concomitant]
     Active Substance: FAMOTIDINE
  20. ADVAIR HFA [Concomitant]
     Active Substance: FLUTICASONE PROPIONATE\SALMETEROL XINAFOATE

REACTIONS (6)
  - Clostridium difficile infection [Not Recovered/Not Resolved]
  - Pneumonia [Unknown]
  - Illness [Not Recovered/Not Resolved]
  - Ear infection [Unknown]
  - Bacterial infection [Unknown]
  - Diarrhoea [Not Recovered/Not Resolved]
